FAERS Safety Report 4269636-5 (Version None)
Quarter: 2004Q1

REPORT INFORMATION
  Report Type: 
  Country: None (occurrence: None)
  Receive Date: 20040112
  Receipt Date: 20040105
  Transmission Date: 20041129
  Serious: Yes (Life-Threatening, Hospitalization)
  Sender: FDA-Public Use
  Company Number: 2003122924

PATIENT
  Age: 67 Year
  Sex: Female
  Weight: 34 kg

DRUGS (5)
  1. DIFLUCAN [Suspect]
     Indication: PNEUMONIA
     Dosage: 200 MG,  ORAL;  400 MG (DAILY), INTRAVENOUS
     Dates: start: 20031123, end: 20031123
  2. DIFLUCAN [Suspect]
     Indication: PNEUMONIA
     Dosage: 200 MG,  ORAL;  400 MG (DAILY), INTRAVENOUS
     Dates: start: 20031124, end: 20031126
  3. CEFPIROME SULFATE (CEFPIROME SULFATE) [Concomitant]
  4. IMMUNE GLOBULIN INTRAVENOUS (HUMAN) [Concomitant]
  5. DIGOXIN [Concomitant]

REACTIONS (1)
  - VENTRICULAR FIBRILLATION [None]
